FAERS Safety Report 6557325-3 (Version None)
Quarter: 2010Q1

REPORT INFORMATION
  Report Type: 
  Country: None (occurrence: None)
  Receive Date: 20100128
  Receipt Date: 20100128
  Transmission Date: 20100710
  Serious: No
  Sender: FDA-Public Use
  Company Number: None

PATIENT

DRUGS (1)
  1. TYLENOL CONCENTRATED INFANT DROPS [Suspect]

REACTIONS (4)
  - ANURIA [None]
  - HEART RATE INCREASED [None]
  - VIRAL INFECTION [None]
  - VOMITING [None]
